FAERS Safety Report 8436546-9 (Version None)
Quarter: 2012Q2

REPORT INFORMATION
  Report Type: 
  Country: None (occurrence: None)
  Receive Date: 20120614
  Receipt Date: 20120607
  Transmission Date: 20120825
  Serious: Yes (Death)
  Sender: FDA-Public Use
  Company Number: JP-GLAXOSMITHKLINE-B0808029A

PATIENT
  Age: 74 Year
  Sex: Female

DRUGS (1)
  1. HYCAMTIN [Suspect]
     Indication: OVARIAN CANCER
     Dosage: .7MGM2 PER DAY
     Route: 042
     Dates: start: 20120510, end: 20120514

REACTIONS (1)
  - GASTROINTESTINAL PERFORATION [None]
